FAERS Safety Report 21834566 (Version 3)
Quarter: 2025Q4

REPORT INFORMATION
  Report Type: Spontaneous
  Country: US (occurrence: US)
  Receive Date: 20230108
  Receipt Date: 20251023
  Transmission Date: 20260118
  Serious: No
  Sender: ROCHE
  Company Number: US-ROCHE-3040018

PATIENT
  Age: 16 Year
  Sex: Male
  Weight: 97.07 kg

DRUGS (2)
  1. HEMLIBRA [Suspect]
     Active Substance: EMICIZUMAB-KXWH
     Indication: Factor VIII deficiency
     Dosage: FORM STRENGTH: 60 MG/0.4 ML?FORM STRENGTH: 150 MG/ML
     Route: 058
     Dates: start: 20191028
  2. HEMLIBRA [Suspect]
     Active Substance: EMICIZUMAB-KXWH
     Dosage: INJECT 1ML (150MG) SUBCUTANEOUSLY ONCE EVERY WEEK FOR MAINTENANCE?DOSIN
     Route: 058

REACTIONS (2)
  - Weight increased [Unknown]
  - Off label use [Unknown]
